FAERS Safety Report 13451571 (Version 3)
Quarter: 2018Q2

REPORT INFORMATION
  Report Type: Spontaneous
  Country: PL (occurrence: PL)
  Receive Date: 20170418
  Receipt Date: 20180630
  Transmission Date: 20180711
  Serious: Yes (Other)
  Sender: FDA-Public Use
  Company Number: PL-AUROBINDO-AUR-APL-2017-32596

PATIENT
  Age: 67 Year
  Sex: Male

DRUGS (25)
  1. MORPHINE [Suspect]
     Active Substance: MORPHINE
     Dosage: 5 MG, EVERY FOUR HOUR
     Route: 048
     Dates: start: 20120621
  2. MORPHINE [Suspect]
     Active Substance: MORPHINE
     Dosage: 5 MG, UNK
     Route: 048
     Dates: start: 20120621, end: 20120621
  3. DEXAMETHASONE. [Concomitant]
     Active Substance: DEXAMETHASONE
     Indication: PRODUCT USED FOR UNKNOWN INDICATION
     Dosage: 4 MG, UNK
     Route: 058
  4. TRAMADOL. [Suspect]
     Active Substance: TRAMADOL
     Dosage: 10 MILLIGRAM, ADMINISTERED EVERY 4 HOURS
     Route: 058
     Dates: start: 20120817
  5. MORPHINE [Suspect]
     Active Substance: MORPHINE
     Dosage: 0.5 ML OF SOLUTION ; AS NECESSARY
     Route: 048
     Dates: start: 20120615
  6. PAPAVERINE [Concomitant]
     Active Substance: PAPAVERINE
     Indication: ANALGESIC THERAPY
     Dosage: UNK
     Route: 065
     Dates: start: 2012
  7. CIPROFLOXACIN. [Concomitant]
     Active Substance: CIPROFLOXACIN
     Dosage: 500 MILLIGRAM, ONCE A DAY
     Route: 048
  8. TRIMETHOPRIM. [Concomitant]
     Active Substance: TRIMETHOPRIM
     Indication: MORGANELLA INFECTION
     Dosage: 5 MILLILITER, TWO TIMES A DAY, (240 MG/5 ML SUSPENSION, RECOMMENDED5 ML EVERY 5 H)
     Route: 048
     Dates: start: 20120621, end: 20120621
  9. TRAMADOL. [Suspect]
     Active Substance: TRAMADOL
     Dosage: CONTROLLED RELEASE FORM
     Route: 048
     Dates: end: 20120807
  10. INSULIN [Concomitant]
     Active Substance: INSULIN NOS
     Indication: TYPE 2 DIABETES MELLITUS
     Dosage: UNK
     Route: 065
  11. CODEINE [Concomitant]
     Active Substance: CODEINE
     Indication: ANALGESIC THERAPY
     Dosage: UNK
     Route: 065
     Dates: start: 2012
  12. MORPHINE [Suspect]
     Active Substance: MORPHINE
     Dosage: ADMINISTERED EVERY 4 HOURS
     Route: 058
     Dates: start: 20120817
  13. OXYCODONE [Suspect]
     Active Substance: OXYCODONE
     Indication: PAIN
     Dosage: 20 MILLIGRAM, ONCE A DAY, (CONTROLLED RELEASE)
     Route: 065
     Dates: start: 20120807
  14. METAMIZOLE [Concomitant]
     Active Substance: METAMIZOLE
     Indication: ANALGESIC THERAPY
     Dosage: UNK
     Route: 065
     Dates: start: 2012
  15. TRAMADOL. [Suspect]
     Active Substance: TRAMADOL
     Dosage: UNK
     Route: 065
     Dates: start: 201208
  16. AKTIL                              /00852501/ [Concomitant]
     Active Substance: AMOXICILLIN\CLAVULANIC ACID
     Indication: PRODUCT USED FOR UNKNOWN INDICATION
     Dosage: 1 G, TWO TIMES A DAY
     Route: 048
  17. AMOXICILLIN/CLAVULANIC ACID [Concomitant]
     Active Substance: AMOXICILLIN\CLAVULANIC ACID
     Indication: PRODUCT USED FOR UNKNOWN INDICATION
     Dosage: 1 GRAM, ONCE A DAY
     Route: 048
  18. VALPROIC ACID. [Concomitant]
     Active Substance: VALPROIC ACID
     Indication: EPILEPSY
     Dosage: 500 MG, TWO TIMES A DAY
     Route: 065
  19. TRAMADOL. [Suspect]
     Active Substance: TRAMADOL
     Indication: PAIN
     Dosage: EVERY 6?8 HOURS
     Route: 048
     Dates: start: 20120606
  20. TRAMADOL. [Suspect]
     Active Substance: TRAMADOL
     Dosage: UNK
     Route: 065
     Dates: start: 20120621
  21. TRAMADOL. [Suspect]
     Active Substance: TRAMADOL
     Dosage: 50?75 MG IN DROPS AS NECESSARY
     Route: 048
     Dates: start: 2012
  22. TRAMADOL. [Suspect]
     Active Substance: TRAMADOL
     Dosage: LARGER DOZE THAN INITIALLY
     Route: 048
  23. MORPHINE [Suspect]
     Active Substance: MORPHINE
     Indication: PAIN
     Dosage: ATTEMPTS TO START MORPHINE AT INTERVAL OF 3-4 DAYS (1)
     Route: 065
     Dates: start: 2012, end: 2012
  24. MORPHINE [Suspect]
     Active Substance: MORPHINE
     Dosage: AS NECESSARY
     Route: 058
     Dates: start: 201208
  25. CIPROFLOXACIN. [Concomitant]
     Active Substance: CIPROFLOXACIN
     Indication: MORGANELLA INFECTION
     Dosage: 1000 MILLIGRAM, ONCE A DAY
     Route: 048
     Dates: start: 201206

REACTIONS (7)
  - Communication disorder [Unknown]
  - Pyrexia [Recovering/Resolving]
  - Hyperthermia [Recovered/Resolved]
  - Musculoskeletal stiffness [Unknown]
  - Somnolence [Unknown]
  - Chills [Recovered/Resolved]
  - Apathy [Unknown]

NARRATIVE: CASE EVENT DATE: 20120612
